FAERS Safety Report 16516638 (Version 1)
Quarter: 2019Q3

REPORT INFORMATION
  Report Type: Spontaneous
  Country: US (occurrence: US)
  Receive Date: 20190702
  Receipt Date: 20190702
  Transmission Date: 20191004
  Serious: Yes (Other)
  Sender: FDA-Public Use
  Company Number: None

PATIENT
  Age: 48 Year
  Sex: Female
  Weight: 56.25 kg

DRUGS (8)
  1. OXYCODONE-APAP 10-325MG TAB [Suspect]
     Active Substance: ACETAMINOPHEN\OXYCODONE HYDROCHLORIDE
     Indication: BACK DISORDER
     Dosage: ?          QUANTITY:120 TABLET(S); EVERY 6 HOURS?
     Route: 048
     Dates: start: 20190701, end: 20190701
  2. ADDERALL [Concomitant]
     Active Substance: AMPHETAMINE ASPARTATE\AMPHETAMINE SULFATE\DEXTROAMPHETAMINE SACCHARATE\DEXTROAMPHETAMINE SULFATE
  3. OXYCODONE-APAP 10-325MG TAB [Suspect]
     Active Substance: ACETAMINOPHEN\OXYCODONE HYDROCHLORIDE
     Indication: SURGERY
     Dosage: ?          QUANTITY:120 TABLET(S); EVERY 6 HOURS?
     Route: 048
     Dates: start: 20190701, end: 20190701
  4. OMEPRAZOLE. [Concomitant]
     Active Substance: OMEPRAZOLE
  5. LORATADINE. [Concomitant]
     Active Substance: LORATADINE
  6. GABAPENTIN. [Concomitant]
     Active Substance: GABAPENTIN
  7. OXYCODONE-APAP 10-325MG TAB [Suspect]
     Active Substance: ACETAMINOPHEN\OXYCODONE HYDROCHLORIDE
     Indication: MUSCULOSKELETAL DISORDER
     Dosage: ?          QUANTITY:120 TABLET(S); EVERY 6 HOURS?
     Route: 048
     Dates: start: 20190701, end: 20190701
  8. VITAMIN C [Concomitant]
     Active Substance: ASCORBIC ACID

REACTIONS (5)
  - Nausea [None]
  - Vomiting [None]
  - Headache [None]
  - Product substitution issue [None]
  - Hyperhidrosis [None]

NARRATIVE: CASE EVENT DATE: 20190701
